FAERS Safety Report 12486976 (Version 1)
Quarter: 2016Q2

REPORT INFORMATION
  Report Type: Spontaneous
  Country: US (occurrence: None)
  Receive Date: 20160621
  Receipt Date: 20160621
  Transmission Date: 20160815
  Serious: No
  Sender: FDA-Public Use
  Company Number: None

PATIENT
  Age: 57 Year
  Sex: Male

DRUGS (1)
  1. FORTEO [Suspect]
     Active Substance: TERIPARATIDE

REACTIONS (5)
  - Intervertebral disc compression [None]
  - Spinal compression fracture [None]
  - Muscle tightness [None]
  - Spinal fracture [None]
  - Body height decreased [None]

NARRATIVE: CASE EVENT DATE: 20160620
